FAERS Safety Report 5394262-4 (Version None)
Quarter: 2007Q3

REPORT INFORMATION
  Report Type: 
  Country: None (occurrence: None)
  Receive Date: 20070723
  Receipt Date: 20070522
  Transmission Date: 20080115
  Serious: No
  Sender: FDA-Public Use
  Company Number: A0652348A

PATIENT
  Age: 62 Year
  Sex: Male

DRUGS (10)
  1. AVANDIA [Suspect]
     Dosage: 8MG PER DAY
     Route: 048
     Dates: start: 20030101
  2. LYRICA [Suspect]
     Route: 065
  3. ALLOPURINOL [Concomitant]
  4. VYTORIN [Concomitant]
  5. LISINOPRIL [Concomitant]
  6. DICLOTEC [Concomitant]
  7. GLIPIZIDE [Concomitant]
  8. TOPROL-XL [Concomitant]
  9. VITAMIN B-12 [Concomitant]
  10. FOLIC ACID [Concomitant]

REACTIONS (3)
  - POLLAKIURIA [None]
  - TINNITUS [None]
  - WEIGHT INCREASED [None]
